FAERS Safety Report 23099021 (Version 1)
Quarter: 2023Q4

REPORT INFORMATION
  Report Type: Spontaneous
  Country: US (occurrence: US)
  Receive Date: 20231024
  Receipt Date: 20231024
  Transmission Date: 20240109
  Serious: No
  Sender: FDA-Public Use
  Company Number: US-UniquePharma-US-2023UPLSPO00014

PATIENT
  Sex: Female

DRUGS (1)
  1. ATENOLOL [Suspect]
     Active Substance: ATENOLOL
     Indication: Blood pressure measurement
     Route: 065

REACTIONS (1)
  - Wrong technique in product usage process [Unknown]
